FAERS Safety Report 24528033 (Version 2)
Quarter: 2025Q2

REPORT INFORMATION
  Report Type: Spontaneous
  Country: JP (occurrence: JP)
  Receive Date: 20241021
  Receipt Date: 20250410
  Transmission Date: 20250717
  Serious: Yes (Hospitalization, Other)
  Sender: ROCHE
  Company Number: JP-CHUGAI-2024036174AA

PATIENT
  Age: 79 Year
  Sex: Male

DRUGS (10)
  1. CELLCEPT [Suspect]
     Active Substance: MYCOPHENOLATE MOFETIL
     Indication: Pemphigoid
     Route: 050
  2. CELLCEPT [Suspect]
     Active Substance: MYCOPHENOLATE MOFETIL
     Route: 050
  3. PREDNISOLONE [Suspect]
     Active Substance: PREDNISOLONE
     Indication: Pemphigoid
     Route: 065
  4. PREDNISOLONE [Suspect]
     Active Substance: PREDNISOLONE
     Dosage: 0.5MG/KG/DAY
     Route: 065
  5. PREDNISOLONE [Suspect]
     Active Substance: PREDNISOLONE
     Dosage: 1MG/KG/DAY
     Route: 065
  6. ALFAROL [Concomitant]
     Active Substance: ALFACALCIDOL
     Route: 048
  7. AZELNIDIPINE [Concomitant]
     Active Substance: AZELNIDIPINE
  8. CIMETIDINE [Concomitant]
     Active Substance: CIMETIDINE
  9. SULFAMETHOXAZOLE\TRIMETHOPRIM [Concomitant]
     Active Substance: SULFAMETHOXAZOLE\TRIMETHOPRIM
  10. INSULIN ASPART [Concomitant]
     Active Substance: INSULIN ASPART

REACTIONS (4)
  - Facial paralysis [Recovering/Resolving]
  - Pharyngeal oedema [Recovering/Resolving]
  - Herpes zoster [Recovering/Resolving]
  - Off label use [Unknown]
